FAERS Safety Report 10532833 (Version 2)
Quarter: 2020Q4

REPORT INFORMATION
  Report Type: Spontaneous
  Country: IT (occurrence: IT)
  Receive Date: 20141022
  Receipt Date: 20201218
  Transmission Date: 20210113
  Serious: Yes (Hospitalization, Other)
  Sender: FDA-Public Use
  Company Number: IT-RANBAXY-2014R1-86769

PATIENT
  Age: 6 Year
  Sex: Female

DRUGS (3)
  1. AMOXICILLIN. [Suspect]
     Active Substance: AMOXICILLIN
     Indication: PRODUCT USED FOR UNKNOWN INDICATION
     Dosage: UNK
     Route: 048
  2. HYDROCORTISONE. [Concomitant]
     Active Substance: HYDROCORTISONE
     Indication: PRODUCT USED FOR UNKNOWN INDICATION
     Dosage: ()
     Route: 042
  3. AMOXICILLIN. [Suspect]
     Active Substance: AMOXICILLIN
     Indication: PRODUCT USED FOR UNKNOWN INDICATION
     Dosage: 150-350MG OF THE THERAPEUTIC DOSE EVERY 30 MIN
     Route: 065

REACTIONS (10)
  - Enterocolitis [Recovered/Resolved]
  - White blood cell count increased [Not Recovered/Not Resolved]
  - Rash morbilliform [Recovered/Resolved]
  - Pallor [Unknown]
  - Lethargy [Recovered/Resolved]
  - Drug hypersensitivity [Unknown]
  - Methaemoglobinaemia [Unknown]
  - Neutrophilia [Unknown]
  - Diarrhoea [Unknown]
  - Vomiting [Recovered/Resolved]
